FAERS Safety Report 8145457-8 (Version None)
Quarter: 2012Q1

REPORT INFORMATION
  Report Type: 
  Country: None (occurrence: None)
  Receive Date: 20120217
  Receipt Date: 20120206
  Transmission Date: 20120608
  Serious: Yes (Other)
  Sender: FDA-Public Use
  Company Number: JP-VERTEX PHARMACEUTICALS INC.-AE-2012-001596

PATIENT
  Age: 50 Year
  Sex: Female

DRUGS (5)
  1. PEGINTERFERON ALFA-2B [Concomitant]
     Indication: HEPATITIS C
     Route: 051
     Dates: start: 20120116, end: 20120126
  2. TELAVIC (TELAPREVIR) [Suspect]
     Indication: HEPATITIS C
     Route: 048
     Dates: start: 20120116, end: 20120126
  3. REBETOL [Concomitant]
     Indication: HEPATITIS C
     Route: 048
     Dates: start: 20120116, end: 20120126
  4. TELMISARTAN [Concomitant]
     Route: 048
  5. MEDETAX [Concomitant]
     Route: 048

REACTIONS (6)
  - TOXIC SKIN ERUPTION [None]
  - NAUSEA [None]
  - VOMITING [None]
  - LIVER DISORDER [None]
  - PYREXIA [None]
  - ABDOMINAL PAIN [None]
